FAERS Safety Report 24895923 (Version 3)
Quarter: 2025Q4

REPORT INFORMATION
  Report Type: Spontaneous
  Country: US (occurrence: US)
  Receive Date: 20250128
  Receipt Date: 20251015
  Transmission Date: 20260117
  Serious: No
  Sender: SANDOZ
  Company Number: US-Sandoz Group AG-00039878

PATIENT
  Sex: Female

DRUGS (1)
  1. RITALIN [Suspect]
     Active Substance: METHYLPHENIDATE HYDROCHLORIDE
     Indication: Product used for unknown indication
     Dosage: UNK
     Route: 065

REACTIONS (5)
  - Aggression [Unknown]
  - Agitation [Unknown]
  - Product dose omission issue [Unknown]
  - Product availability issue [Unknown]
  - Intentional overdose [Unknown]
